FAERS Safety Report 24008509 (Version 1)
Quarter: 2024Q2

REPORT INFORMATION
  Report Type: Spontaneous
  Country: JP (occurrence: JP)
  Receive Date: 20240625
  Receipt Date: 20240625
  Transmission Date: 20240716
  Serious: Yes (Hospitalization, Other)
  Sender: FDA-Public Use
  Company Number: JP-MSD-2406JPN002974J

PATIENT
  Age: 83 Year
  Sex: Male
  Weight: 52 kg

DRUGS (11)
  1. CUBICIN [Suspect]
     Active Substance: DAPTOMYCIN
     Indication: Meningitis
     Dosage: 350 MILLIGRAM, QD
     Route: 042
     Dates: start: 20240401, end: 20240514
  2. CUBICIN [Suspect]
     Active Substance: DAPTOMYCIN
     Indication: Spondylitis
  3. CUBICIN [Suspect]
     Active Substance: DAPTOMYCIN
     Indication: Pseudomonas test positive
  4. AMLODIPINE BESYLATE [Concomitant]
     Active Substance: AMLODIPINE BESYLATE
     Dosage: UNK
     Route: 048
  5. ENTRESTO [Concomitant]
     Active Substance: SACUBITRIL\VALSARTAN
     Dosage: UNK
     Route: 048
     Dates: start: 20240331, end: 20240514
  6. VIBEGRON [Concomitant]
     Active Substance: VIBEGRON
     Dosage: UNK
     Route: 048
  7. CLENBUTEROL HYDROCHLORIDE [Concomitant]
     Active Substance: CLENBUTEROL HYDROCHLORIDE
     Dosage: UNK
     Route: 048
  8. DIOVAN [Concomitant]
     Active Substance: VALSARTAN
     Dosage: UNK
     Route: 048
  9. SIVEXTRO [Concomitant]
     Active Substance: TEDIZOLID PHOSPHATE
     Indication: Meningitis
     Dosage: UNK
     Route: 065
     Dates: start: 20240401, end: 2024
  10. SIVEXTRO [Concomitant]
     Active Substance: TEDIZOLID PHOSPHATE
     Indication: Spondylitis
  11. CEFTRIAXONE [Concomitant]
     Active Substance: CEFTRIAXONE\CEFTRIAXONE SODIUM
     Dosage: UNK
     Route: 065
     Dates: start: 20240416, end: 202405

REACTIONS (3)
  - Pneumonitis [Recovering/Resolving]
  - Overdose [Unknown]
  - Product use in unapproved indication [Unknown]

NARRATIVE: CASE EVENT DATE: 20240401
